FAERS Safety Report 7927683-3 (Version None)
Quarter: 2011Q4

REPORT INFORMATION
  Report Type: 
  Country: None (occurrence: None)
  Receive Date: 20111118
  Receipt Date: 20111114
  Transmission Date: 20120403
  Serious: Yes (Life-Threatening, Hospitalization, Other)
  Sender: FDA-Public Use
  Company Number: US-US-EMD SERONO, INC.-7095777

PATIENT
  Sex: Male
  Weight: 61 kg

DRUGS (6)
  1. DEPAKOTE [Concomitant]
     Indication: CONVULSION
  2. NEURONTIN [Concomitant]
     Indication: CONVULSION
  3. VIBRATE [Concomitant]
     Indication: DEPRESSION
  4. REBIF [Suspect]
     Indication: MULTIPLE SCLEROSIS
     Route: 058
     Dates: start: 20100419, end: 20110401
  5. BUSPIRIN [Concomitant]
     Indication: ANXIETY
  6. REBIF [Suspect]
     Route: 058
     Dates: start: 20110427

REACTIONS (11)
  - SPLENIC RUPTURE [None]
  - ROAD TRAFFIC ACCIDENT [None]
  - PNEUMOTHORAX TRAUMATIC [None]
  - CONCUSSION [None]
  - WEIGHT DECREASED [None]
  - RIB FRACTURE [None]
  - INFLUENZA LIKE ILLNESS [None]
  - INJECTION SITE PAIN [None]
  - BONE INFARCTION [None]
  - FRACTURE [None]
  - HEAD INJURY [None]
